FAERS Safety Report 5257579-X (Version None)
Quarter: 2007Q1

REPORT INFORMATION
  Report Type: 
  Country: None (occurrence: None)
  Receive Date: 20070302
  Receipt Date: 20070223
  Transmission Date: 20070707
  Serious: Yes (Death)
  Sender: FDA-Public Use
  Company Number: 2007-154991-NL

PATIENT
  Age: 78 Year
  Sex: Male

DRUGS (1)
  1. NANDROLONE DECANOATE [Suspect]
     Dosage: DF INTRAMUSCULAR
     Route: 030
     Dates: start: 20070219, end: 20070219

REACTIONS (3)
  - APATHY [None]
  - EPISTAXIS [None]
  - MOUTH HAEMORRHAGE [None]
